FAERS Safety Report 11029568 (Version 1)
Quarter: 2015Q2

REPORT INFORMATION
  Report Type: Spontaneous
  Country: US (occurrence: None)
  Receive Date: 20150413
  Receipt Date: 20150413
  Transmission Date: 20150821
  Serious: No
  Sender: FDA-Public Use
  Company Number: None

PATIENT
  Age: 67 Year
  Sex: Female
  Weight: 96.62 kg

DRUGS (22)
  1. HCTZ [Concomitant]
     Active Substance: HYDROCHLOROTHIAZIDE
  2. SPIRONOLACTONE. [Concomitant]
     Active Substance: SPIRONOLACTONE
  3. TAMSULOSIN [Concomitant]
     Active Substance: TAMSULOSIN
  4. LEVOTHYROXINE [Concomitant]
     Active Substance: LEVOTHYROXINE
  5. ADVAIR DISKUS [Concomitant]
     Active Substance: FLUTICASONE PROPIONATE\SALMETEROL XINAFOATE
  6. OMEPRAZOLE. [Concomitant]
     Active Substance: OMEPRAZOLE
  7. FOSAMAX [Concomitant]
     Active Substance: ALENDRONATE SODIUM
  8. ARTIFICAL TEARS [Concomitant]
     Active Substance: GLYCERIN\HYPROMELLOSE 2910 (15 MPA.S)\POLYETHYLENE GLYCOL 400\PROPYLENE GLYCOL
  9. PRAVASTATIN [Concomitant]
     Active Substance: PRAVASTATIN\PRAVASTATIN SODIUM
  10. HYDROCODONE [Concomitant]
     Active Substance: HYDROCODONE
  11. ALPHAGEN-P [Concomitant]
  12. SLOW-MAG [Concomitant]
     Active Substance: MAGNESIUM CHLORIDE
  13. CALCIUM [Concomitant]
     Active Substance: CALCIUM
  14. MS CONTIN [Concomitant]
     Active Substance: MORPHINE SULFATE
  15. BACLOFEN. [Suspect]
     Active Substance: BACLOFEN
     Indication: MICTURITION DISORDER
     Dosage: TAKEN BY MOUTH 2 TABS
     Route: 048
     Dates: start: 20150313, end: 20150410
  16. PROCRIT EYE INJECTION [Concomitant]
  17. RESVERATROL (LONGEVINEX) [Concomitant]
  18. VITAMIN D3 [Concomitant]
     Active Substance: CHOLECALCIFEROL
  19. DOXEPIN [Concomitant]
     Active Substance: DOXEPIN
  20. LUMIGAN [Concomitant]
     Active Substance: BIMATOPROST
  21. COQ10 [Concomitant]
     Active Substance: UBIDECARENONE
  22. HYDRALAZINE [Concomitant]
     Active Substance: HYDRALAZINE HYDROCHLORIDE

REACTIONS (3)
  - Aptyalism [None]
  - Dry mouth [None]
  - Drug ineffective [None]

NARRATIVE: CASE EVENT DATE: 20150401
